FAERS Safety Report 13068282 (Version 1)
Quarter: 2016Q4

REPORT INFORMATION
  Report Type: Spontaneous
  Country: IT (occurrence: IT)
  Receive Date: 20161228
  Receipt Date: 20161228
  Transmission Date: 20170207
  Serious: Yes (Other)
  Sender: FDA-Public Use
  Company Number: IT-TEVA-723326ACC

PATIENT
  Age: 34 Year
  Sex: Female

DRUGS (1)
  1. CIQORIN - 100 MG CAPSULE MOLLI - TEVA ITALIA S.R.L. [Suspect]
     Active Substance: CYCLOSPORINE
     Indication: PSORIASIS
     Dosage: 300 MILLIGRAM DAILY;
     Route: 048

REACTIONS (6)
  - Psychomotor hyperactivity [Unknown]
  - Pruritus [Unknown]
  - Vomiting [Unknown]
  - Asthenia [Unknown]
  - Hypertensive crisis [Unknown]
  - Nausea [Unknown]

NARRATIVE: CASE EVENT DATE: 20160301
